FAERS Safety Report 5309573-8 (Version None)
Quarter: 2007Q2

REPORT INFORMATION
  Report Type: 
  Country: None (occurrence: None)
  Receive Date: 20070427
  Receipt Date: 20070420
  Transmission Date: 20071010
  Serious: Yes (Hospitalization, Other)
  Sender: FDA-Public Use
  Company Number: CA-BRISTOL-MYERS SQUIBB COMPANY-13670146

PATIENT
  Age: 70 Year
  Sex: Female

DRUGS (6)
  1. ORENCIA [Suspect]
     Indication: RHEUMATOID ARTHRITIS
     Route: 042
     Dates: start: 20061214, end: 20070322
  2. METHOTREXATE [Suspect]
  3. PREDNISONE TAB [Concomitant]
  4. LASIX [Concomitant]
  5. FOLIC ACID [Concomitant]
  6. POTASSIUM SLOW RELEASE [Concomitant]

REACTIONS (7)
  - ARTHRALGIA [None]
  - HEPATIC ENZYME INCREASED [None]
  - HYPERTENSION [None]
  - JOINT SWELLING [None]
  - OEDEMA PERIPHERAL [None]
  - PAIN IN EXTREMITY [None]
  - RASH [None]
